FAERS Safety Report 16943866 (Version 1)
Quarter: 2019Q4

REPORT INFORMATION
  Report Type: Spontaneous
  Country: GB (occurrence: GB)
  Receive Date: 20191022
  Receipt Date: 20191022
  Transmission Date: 20200122
  Serious: Yes (Death, Hospitalization)
  Sender: FDA-Public Use
  Company Number: GB-TEVA-2019-GB-1124436

PATIENT
  Age: 80 Year
  Sex: Female
  Weight: 63.5 kg

DRUGS (2)
  1. WARFARIN [Suspect]
     Active Substance: WARFARIN
     Route: 048
     Dates: start: 2013
  2. DIURETIC [Concomitant]
     Active Substance: UNSPECIFIED INGREDIENT

REACTIONS (5)
  - Fluid retention [Fatal]
  - Nephropathy [Fatal]
  - Dizziness [Fatal]
  - Dyspnoea [Fatal]
  - Blood electrolytes decreased [Fatal]

NARRATIVE: CASE EVENT DATE: 2014
